FAERS Safety Report 17530568 (Version 1)
Quarter: 2020Q1

REPORT INFORMATION
  Report Type: Spontaneous
  Country: US (occurrence: US)
  Receive Date: 20200312
  Receipt Date: 20200312
  Transmission Date: 20200409
  Serious: No
  Sender: FDA-Public Use
  Company Number: US-LUPIN PHARMACEUTICALS INC.-2019-03987

PATIENT
  Sex: Male
  Weight: 84 kg

DRUGS (1)
  1. SERTRALINE HYDROCHLORIDE TABLETS USP, 100 MG [Suspect]
     Active Substance: SERTRALINE HYDROCHLORIDE
     Indication: PREMATURE EJACULATION
     Dosage: 200 MILLIGRAM, QD
     Route: 048

REACTIONS (5)
  - Eye movement disorder [Recovered/Resolved]
  - Drug ineffective for unapproved indication [Unknown]
  - Auditory disorder [Recovered/Resolved]
  - Withdrawal syndrome [Recovered/Resolved]
  - Irritability [Recovered/Resolved]
